FAERS Safety Report 6500392-3 (Version None)
Quarter: 2009Q4

REPORT INFORMATION
  Report Type: 
  Country: None (occurrence: None)
  Receive Date: 20091216
  Receipt Date: 20091204
  Transmission Date: 20100525
  Serious: Yes (Hospitalization, Other)
  Sender: FDA-Public Use
  Company Number: PHHY2009SE50108

PATIENT
  Sex: Female

DRUGS (3)
  1. VOLTAREN [Suspect]
     Indication: ABDOMINAL PAIN
     Dosage: 1 DF, ONCE/SINGLE
     Dates: start: 20091107
  2. KETOGAN NOVUM [Concomitant]
     Dosage: 2 ML
  3. ANAESTHETICS [Concomitant]

REACTIONS (3)
  - HYPERSENSITIVITY [None]
  - RASH ERYTHEMATOUS [None]
  - SURGERY [None]
